FAERS Safety Report 5843488-1 (Version None)
Quarter: 2008Q3

REPORT INFORMATION
  Report Type: 
  Country: None (occurrence: None)
  Receive Date: 20080808
  Receipt Date: 20080715
  Transmission Date: 20090109
  Serious: Yes (Death, Hospitalization)
  Sender: FDA-Public Use
  Company Number: 2008AL009109

PATIENT
  Age: 48 Year
  Sex: Male

DRUGS (4)
  1. SERTRALINE HYDROCHLORIDE [Suspect]
     Indication: DEPRESSION
     Dosage: 100 MG; PO
     Route: 048
     Dates: start: 20060314, end: 20060728
  2. ATORVASTATIN [Concomitant]
  3. QUETIAPINE [Concomitant]
  4. ARIPIPRAZOLE [Concomitant]

REACTIONS (4)
  - HEPATIC FAILURE [None]
  - HEPATIC STEATOSIS [None]
  - OEDEMA [None]
  - PULMONARY CONGESTION [None]
